FAERS Safety Report 5098151-4 (Version None)
Quarter: 2006Q3

REPORT INFORMATION
  Report Type: 
  Country: None (occurrence: None)
  Receive Date: 20060906
  Receipt Date: 20060502
  Transmission Date: 20061208
  Serious: No
  Sender: FDA-Public Use
  Company Number: US-GLAXOSMITHKLINE-A0604077A

PATIENT
  Age: 64 Year
  Sex: Female

DRUGS (5)
  1. REQUIP [Suspect]
     Indication: RESTLESS LEGS SYNDROME
     Dosage: 2MG TWICE PER DAY
     Route: 048
     Dates: start: 20060401
  2. ZOCOR [Concomitant]
  3. TOPROL-XL [Concomitant]
  4. NIACIN [Concomitant]
  5. ASPIRIN [Concomitant]

REACTIONS (7)
  - DRUG INEFFECTIVE [None]
  - DYSPEPSIA [None]
  - FEELING JITTERY [None]
  - INSOMNIA [None]
  - REBOUND EFFECT [None]
  - RESTLESSNESS [None]
  - SOMNOLENCE [None]
